FAERS Safety Report 12053051 (Version 1)
Quarter: 2016Q1

REPORT INFORMATION
  Report Type: Spontaneous
  Country: US (occurrence: US)
  Receive Date: 20160209
  Receipt Date: 20160209
  Transmission Date: 20160526
  Serious: No
  Sender: FDA-Public Use
  Company Number: US-GUERBET LLC-1047517

PATIENT
  Age: 63 Year
  Sex: Female

DRUGS (13)
  1. DOTAREM [Suspect]
     Active Substance: GADOTERATE MEGLUMINE
     Indication: NUCLEAR MAGNETIC RESONANCE IMAGING
     Route: 042
     Dates: start: 20151229, end: 20151229
  2. PREDNISONE. [Concomitant]
     Active Substance: PREDNISONE
  3. BACLOFEN. [Concomitant]
     Active Substance: BACLOFEN
  4. FUROSEMIDE. [Concomitant]
     Active Substance: FUROSEMIDE
  5. PLAQUENIL [Concomitant]
     Active Substance: HYDROXYCHLOROQUINE SULFATE
  6. METHOTREXATE [Concomitant]
     Active Substance: METHOTREXATE
  7. NAPROXEN. [Concomitant]
     Active Substance: NAPROXEN
  8. FOLIC ACID. [Concomitant]
     Active Substance: FOLIC ACID
  9. FLUNISOLIDE. [Concomitant]
     Active Substance: FLUNISOLIDE
  10. GABAPENTIN. [Concomitant]
     Active Substance: GABAPENTIN
  11. LISINOPRIL. [Concomitant]
     Active Substance: LISINOPRIL
  12. PANTOPRAZOLE [Concomitant]
     Active Substance: PANTOPRAZOLE SODIUM
  13. POTASSIUM CHLORIDE. [Concomitant]
     Active Substance: POTASSIUM CHLORIDE

REACTIONS (1)
  - Feeling hot [Recovered/Resolved]

NARRATIVE: CASE EVENT DATE: 20151229
